FAERS Safety Report 22522244 (Version 1)
Quarter: 2023Q2

REPORT INFORMATION
  Report Type: Spontaneous
  Country: KR (occurrence: KR)
  Receive Date: 20230605
  Receipt Date: 20230605
  Transmission Date: 20230721
  Serious: Yes (Hospitalization)
  Sender: FDA-Public Use
  Company Number: KR-ORGANON-O2305KOR003138

PATIENT
  Sex: Female
  Weight: 68.55 kg

DRUGS (5)
  1. COZAAR [Suspect]
     Active Substance: LOSARTAN POTASSIUM
     Indication: Essential hypertension
     Dosage: 50 MILLIGRAM,  ONCE A DAY (QD), FORMULATION: FILM-COATED TABLET
     Route: 048
  2. LERCANIDIPINE HYDROCHLORIDE [Concomitant]
     Active Substance: LERCANIDIPINE HYDROCHLORIDE
     Indication: Essential hypertension
     Dosage: 10 MILLIGRAM, ONCE A DAY (QD)
     Route: 048
  3. MAGNESIUM OXIDE [Concomitant]
     Active Substance: MAGNESIUM OXIDE
     Indication: Prophylaxis
     Dosage: 500 MILLIGRAM, 0.5 DAY (FORMULATION: HARD CAPSULE POWDER)
     Route: 048
     Dates: start: 20180521
  4. BROMELAINS;DIMETICONE;PANCREATIN [Concomitant]
     Indication: Prophylaxis
     Dosage: 1 FORMULATION 0.33 DAY (FORMULATION: ENTERIC FILM-COATED TABLETS)
     Route: 048
     Dates: start: 20180524
  5. LACTULOSE [Concomitant]
     Active Substance: LACTULOSE
     Indication: Prophylaxis
     Dosage: 1 FORMULATION 0.5 DAY (REPORTED AS LACTULOSE CONCENTRATE SOLUTION)(FORMULATION: LIQUID SYRUP)
     Route: 048
     Dates: start: 20180524

REACTIONS (1)
  - Fracture [Recovering/Resolving]

NARRATIVE: CASE EVENT DATE: 20180528
